FAERS Safety Report 8866520 (Version 1)
Quarter: 2012Q4

REPORT INFORMATION
  Report Type: 
  Country: US (occurrence: US)
  Receive Date: 20121025
  Receipt Date: 20121025
  Transmission Date: 20130627
  Serious: No
  Sender: FDA-Public Use
  Company Number: US-ABBOTT-12P-163-0900110-00

PATIENT
  Sex: Female
  Weight: 104.42 kg

DRUGS (7)
  1. SYMBICORT [Concomitant]
     Indication: HYPERSENSITIVITY
  2. LUPRON DEPOT 3.75 MG [Suspect]
     Indication: ENDOMETRIOSIS
     Dates: start: 201109, end: 201111
  3. LUPRON DEPOT 3.75 MG [Suspect]
  4. LUPRON DEPOT [Suspect]
     Dates: start: 20111212
  5. WELLBUTRIN [Concomitant]
     Indication: ANXIETY
  6. PROZAC [Concomitant]
     Indication: ANXIETY
  7. ZYRTEC [Concomitant]
     Indication: HYPERSENSITIVITY

REACTIONS (2)
  - Nausea [Not Recovered/Not Resolved]
  - Abdominal pain [Not Recovered/Not Resolved]
